FAERS Safety Report 7069830-4 (Version None)
Quarter: 2010Q4

REPORT INFORMATION
  Report Type: 
  Country: None (occurrence: None)
  Receive Date: 20101028
  Receipt Date: 20100616
  Transmission Date: 20110411
  Serious: No
  Sender: FDA-Public Use
  Company Number: US-WYE-H15902110

PATIENT
  Age: 65 Year
  Sex: Female
  Weight: 47.67 kg

DRUGS (1)
  1. ADVIL [Suspect]
     Indication: PAIN
     Route: 048
     Dates: start: 20100612, end: 20100612

REACTIONS (2)
  - DYSPEPSIA [None]
  - NAUSEA [None]
